FAERS Safety Report 4413248-7 (Version None)
Quarter: 2004Q3

REPORT INFORMATION
  Report Type: 
  Country: None (occurrence: None)
  Receive Date: 20040802
  Receipt Date: 20040720
  Transmission Date: 20050211
  Serious: Yes (Hospitalization)
  Sender: FDA-Public Use
  Company Number: PHHO2004US10396

PATIENT
  Age: 58 Year
  Sex: Male
  Weight: 156 kg

DRUGS (7)
  1. SANDOSTATIN LAR [Suspect]
     Indication: DIABETIC RETINOPATHY
     Dosage: UNSPECIFIED
     Route: 030
     Dates: start: 20010427, end: 20040607
  2. HYDROCHLOROTHIAZIDE [Suspect]
     Indication: HYPERTENSION
     Dosage: 25 MG, QD
     Dates: start: 20040528
  3. COREG [Suspect]
     Indication: CARDIOMYOPATHY
     Dosage: 25 MG, BID
     Route: 048
  4. DIGOXIN [Suspect]
     Indication: ATRIAL FIBRILLATION
     Dosage: 25 MG, BID
     Route: 048
  5. TORSEMIDE [Suspect]
     Indication: FLUID RETENTION
     Dosage: 40 MG, QD
     Dates: start: 20040423
  6. LISINOPRIL [Suspect]
     Indication: HYPERTENSION
     Dosage: 40 MG, QD
  7. PLENDIL [Suspect]
     Indication: HYPERTENSION
     Dosage: 10 MG, QD
     Dates: start: 20011022

REACTIONS (5)
  - BRADYCARDIA [None]
  - CARDIAC PACEMAKER INSERTION [None]
  - DIZZINESS [None]
  - FATIGUE [None]
  - HYPOTENSION [None]
